FAERS Safety Report 9047493 (Version 2)
Quarter: 2013Q2

REPORT INFORMATION
  Report Type: Report from Study
  Country: US (occurrence: US)
  Receive Date: 20130201
  Receipt Date: 20130405
  Transmission Date: 20140414
  Serious: Yes (Other)
  Sender: FDA-Public Use
  Company Number: US-ABBOTT-12P-163-1026459-00

PATIENT
  Age: 19 Year
  Sex: Male
  Weight: 85.81 kg

DRUGS (2)
  1. HUMIRA [Suspect]
     Indication: CROHN^S DISEASE
     Dates: start: 201209
  2. HUMIRA [Suspect]
     Dates: start: 20121115

REACTIONS (1)
  - Anal fistula [Recovering/Resolving]
